FAERS Safety Report 8558635-0 (Version None)
Quarter: 2012Q3

REPORT INFORMATION
  Report Type: 
  Country: None (occurrence: None)
  Receive Date: 20120801
  Receipt Date: 20120723
  Transmission Date: 20120928
  Serious: Yes (Other)
  Sender: FDA-Public Use
  Company Number: FR-ASTRAZENECA-2012SE51568

PATIENT
  Age: 65 Year
  Sex: Female

DRUGS (3)
  1. LIDOCAINE [Suspect]
     Indication: LOCAL ANAESTHESIA
     Dosage: WITH ADREANALINE
  2. MIDAZOLAM [Concomitant]
     Indication: SEDATION
     Dosage: 1-2 MG
  3. ROPIVACAINE HYDROCHLORIDE [Suspect]
     Indication: LOCAL ANAESTHESIA
     Route: 053

REACTIONS (1)
  - PERONEAL NERVE PALSY [None]
